FAERS Safety Report 15607209 (Version 1)
Quarter: 2018Q4

REPORT INFORMATION
  Report Type: Spontaneous
  Country: LB (occurrence: LB)
  Receive Date: 20181112
  Receipt Date: 20181112
  Transmission Date: 20190205
  Serious: Yes (Death, Other)
  Sender: FDA-Public Use
  Company Number: LB-MYLANLABS-2018M1083779

PATIENT
  Sex: Female

DRUGS (6)
  1. VENETOCLAX. [Suspect]
     Active Substance: VENETOCLAX
     Indication: ACUTE LYMPHOCYTIC LEUKAEMIA
     Dosage: 5-DAY RAMP UP STARTING WITH 20 MG/DAY THEN 50 MG/DAY THEN 100 MG/DAY THEN 200 MG/DAY TO 400 MG ON...
     Route: 037
     Dates: start: 20171229
  2. METHOTREXATE. [Suspect]
     Active Substance: METHOTREXATE
     Indication: ACUTE LYMPHOCYTIC LEUKAEMIA
     Dosage: ON DAY 14
     Route: 037
     Dates: start: 20171222
  3. VINCRISTINE [Suspect]
     Active Substance: VINCRISTINE
     Indication: ACUTE LYMPHOCYTIC LEUKAEMIA
     Dosage: (CAPPED AT 2 MG) FOR 3 WEEKS
     Route: 065
     Dates: start: 20171222
  4. PREDNISONE. [Suspect]
     Active Substance: PREDNISONE
     Indication: ACUTE LYMPHOCYTIC LEUKAEMIA
     Dosage: FOR 28 DAYS
     Route: 065
     Dates: start: 20171222
  5. L-ASPARAGINASE [Suspect]
     Active Substance: ASPARAGINASE
     Indication: ACUTE LYMPHOCYTIC LEUKAEMIA
     Dosage: 6000 UNITS/M2 THREE TIMES WEEKLY FOR 9 DOSES
     Route: 065
     Dates: start: 20171222
  6. CYTARABINE. [Suspect]
     Active Substance: CYTARABINE
     Indication: ACUTE LYMPHOCYTIC LEUKAEMIA
     Dosage: ON DAY 0
     Route: 037
     Dates: start: 20171222

REACTIONS (4)
  - Pancytopenia [Unknown]
  - Tumour lysis syndrome [Recovering/Resolving]
  - Febrile neutropenia [Unknown]
  - Organ failure [Unknown]

NARRATIVE: CASE EVENT DATE: 20180121
